FAERS Safety Report 5967907-5 (Version None)
Quarter: 2008Q4

REPORT INFORMATION
  Report Type: 
  Country: None (occurrence: None)
  Receive Date: 20081126
  Receipt Date: 20081119
  Transmission Date: 20090506
  Serious: Yes (Hospitalization, Other)
  Sender: FDA-Public Use
  Company Number: US-BIOGENIDEC-2008BI018431

PATIENT
  Age: 66 Year
  Sex: Female

DRUGS (2)
  1. AVONEX [Suspect]
     Indication: MULTIPLE SCLEROSIS
     Route: 030
     Dates: start: 20010503
  2. AVONEX [Suspect]
     Route: 030
     Dates: start: 20010503

REACTIONS (2)
  - GASTROINTESTINAL STROMAL TUMOUR [None]
  - HAEMATEMESIS [None]
